FAERS Safety Report 11584797 (Version 1)
Quarter: 2015Q4

REPORT INFORMATION
  Report Type: Spontaneous
  Country: US (occurrence: US)
  Receive Date: 20151001
  Receipt Date: 20151001
  Transmission Date: 20160304
  Serious: No
  Sender: FDA-Public Use
  Company Number: US-JNJFOC-20150907414

PATIENT
  Age: 9 Decade
  Sex: Male
  Weight: 59.88 kg

DRUGS (2)
  1. NIZORAL A-D [Suspect]
     Active Substance: KETOCONAZOLE
     Route: 061
  2. NIZORAL A-D [Suspect]
     Active Substance: KETOCONAZOLE
     Indication: PRURITUS
     Dosage: EVERY OTHER DAY
     Route: 061
     Dates: start: 20150909

REACTIONS (1)
  - Intentional product misuse [Unknown]
